FAERS Safety Report 13176892 (Version 1)
Quarter: 2017Q1

REPORT INFORMATION
  Report Type: Spontaneous
  Country: US (occurrence: US)
  Receive Date: 20170201
  Receipt Date: 20170201
  Transmission Date: 20170428
  Serious: No
  Sender: FDA-Public Use
  Company Number: US-PFIZER INC-2017039220

PATIENT
  Age: 65 Year
  Sex: Female

DRUGS (2)
  1. ELELYSO [Suspect]
     Active Substance: TALIGLUCERASE ALFA
     Indication: GAUCHER^S DISEASE
     Dosage: 6600 EVERY 2 WEEKS
     Route: 042
     Dates: start: 20120801, end: 201604
  2. ELELYSO [Suspect]
     Active Substance: TALIGLUCERASE ALFA
     Dosage: 6600 EVERY 2 WEEKS
     Route: 042
     Dates: start: 20161001

REACTIONS (1)
  - Oedema peripheral [Unknown]
